FAERS Safety Report 11077216 (Version 1)
Quarter: 2015Q2

REPORT INFORMATION
  Report Type: Spontaneous
  Country: US (occurrence: US)
  Receive Date: 20150429
  Receipt Date: 20150429
  Transmission Date: 20150821
  Serious: Yes (Other)
  Sender: FDA-Public Use
  Company Number: ALCN2015US002625

PATIENT
  Sex: Female

DRUGS (2)
  1. DUREZOL [Suspect]
     Active Substance: DIFLUPREDNATE
     Indication: SCLERITIS
     Dosage: 1 GTT, Q2H
     Route: 047
  2. DUREZOL [Suspect]
     Active Substance: DIFLUPREDNATE
     Indication: OFF LABEL USE

REACTIONS (7)
  - Cartilage atrophy [Unknown]
  - Nasal congestion [Unknown]
  - Scab [Unknown]
  - Eye disorder [Unknown]
  - Influenza like illness [Unknown]
  - Nasal septum deviation [Unknown]
  - Off label use [Unknown]
